FAERS Safety Report 5495674-0 (Version None)
Quarter: 2007Q4

REPORT INFORMATION
  Report Type: 
  Country: None (occurrence: None)
  Receive Date: 20071018
  Receipt Date: 20070102
  Transmission Date: 20080405
  Serious: Yes (Other)
  Sender: FDA-Public Use
  Company Number: 2006066769

PATIENT
  Age: 60 Year
  Sex: Male

DRUGS (4)
  1. NEURONTIN [Suspect]
     Indication: NERVE INJURY
     Dosage: (300 MG)
     Dates: start: 20040121
  2. NEURONTIN [Suspect]
     Indication: PAIN
     Dosage: (300 MG)
     Dates: start: 20040121
  3. HYDROCODONE BITARTRATE + ACETAMINOPHEN [Concomitant]
  4. PROPOXYPHENE HYDROCHLORIDE [Concomitant]

REACTIONS (2)
  - DRUG INEFFECTIVE [None]
  - SUICIDE ATTEMPT [None]
